FAERS Safety Report 9029140 (Version 2)
Quarter: 2013Q4

REPORT INFORMATION
  Report Type: Spontaneous
  Country: CA (occurrence: CA)
  Receive Date: 20130124
  Receipt Date: 20131211
  Transmission Date: 20140711
  Serious: Yes (Other)
  Sender: FDA-Public Use
  Company Number: CA-AMGEN-CANSP2013003775

PATIENT
  Age: 73 Year
  Sex: Male

DRUGS (16)
  1. ENBREL [Suspect]
     Indication: RHEUMATOID ARTHRITIS
     Dosage: 50 MG, 1 IN 1 WEEK
     Route: 058
     Dates: start: 20101112
  2. REMICADE [Suspect]
     Indication: PRODUCT USED FOR UNKNOWN INDICATION
     Dosage: UNK
     Route: 042
  3. AMITRIPTYLINE [Concomitant]
     Dosage: 25 MG, UNK
     Dates: start: 20000615
  4. AZATHIOPRINE [Concomitant]
     Dosage: 100 MG, UNK
     Dates: start: 20080615
  5. DOMPERIDONE [Concomitant]
     Dosage: 60 MG, UNK
     Dates: start: 19950615
  6. ASA [Concomitant]
     Dosage: 325 MG, UNK
     Dates: start: 20080615
  7. FLOMAX                             /01280302/ [Concomitant]
     Dosage: 0.4 MG, UNK
     Dates: start: 20000615
  8. GABAPENTIN [Concomitant]
     Dosage: 1800 MG, UNK
     Dates: start: 20000615
  9. HYDROCHLOROTHIAZIDE [Concomitant]
     Dosage: 25 MG, UNK
     Dates: start: 19900615
  10. HYDROMORPHONE HCL [Concomitant]
     Dosage: 30 MG, UNK
     Dates: start: 20080615
  11. MELOXICAM [Concomitant]
     Dosage: 15 MG, UNK
     Dates: start: 20050615
  12. MULTIVITAMINS [Concomitant]
     Dosage: 1 DF, UNK
     Dates: start: 19950615
  13. RABEPRAZOLE [Concomitant]
     Dosage: 20 MG, UNK
     Dates: start: 20080615
  14. SLOW-K [Concomitant]
     Dosage: 3 DF, UNK
     Dates: start: 19900615
  15. TYLENOL ARTHRITIS [Concomitant]
     Dosage: 1300 MG, UNK
     Dates: start: 19930615
  16. INFLIXIMAB [Concomitant]
     Dosage: UNK

REACTIONS (1)
  - Squamous cell carcinoma [Recovered/Resolved]
